FAERS Safety Report 7573151-0 (Version None)
Quarter: 2011Q2

REPORT INFORMATION
  Report Type: 
  Country: None (occurrence: None)
  Receive Date: 20110627
  Receipt Date: 20110621
  Transmission Date: 20111010
  Serious: Yes (Other)
  Sender: FDA-Public Use
  Company Number: IL-BRISTOL-MYERS SQUIBB COMPANY-15499478

PATIENT
  Age: 45 Year
  Sex: Female

DRUGS (1)
  1. BARACLUDE [Suspect]
     Dates: start: 20100501, end: 20110115

REACTIONS (1)
  - LOSS OF CONSCIOUSNESS [None]
